FAERS Safety Report 4374273-8 (Version None)
Quarter: 2004Q2

REPORT INFORMATION
  Report Type: 
  Country: None (occurrence: None)
  Receive Date: 20040603
  Receipt Date: 20040512
  Transmission Date: 20050107
  Serious: Yes (Death, Hospitalization)
  Sender: FDA-Public Use
  Company Number: GBS040514926

PATIENT
  Age: 80 Year
  Sex: Male

DRUGS (1)
  1. PERGOLIDE MESYLATE [Suspect]
     Indication: PARKINSON'S DISEASE
     Dosage: 1 MG/ 4 DAY
     Dates: start: 20040101

REACTIONS (4)
  - AGGRESSION [None]
  - BRONCHOPNEUMONIA [None]
  - CONFUSIONAL STATE [None]
  - MEDICATION ERROR [None]
